FAERS Safety Report 8297284-9 (Version None)
Quarter: 2012Q2

REPORT INFORMATION
  Report Type: 
  Country: None (occurrence: None)
  Receive Date: 20120419
  Receipt Date: 20120406
  Transmission Date: 20120825
  Serious: Yes (Other)
  Sender: FDA-Public Use
  Company Number: US-ELI_LILLY_AND_COMPANY-US201204002833

PATIENT
  Sex: Female
  Weight: 70.295 kg

DRUGS (9)
  1. OLANZAPINE [Suspect]
     Dosage: 300 MG, UNK
     Route: 030
     Dates: start: 20120405
  2. CELEBREX [Concomitant]
     Dosage: 100 MG, BID
  3. OLANZAPINE [Suspect]
     Dosage: 210 MG, UNK
     Route: 030
     Dates: start: 20120327
  4. EVISTA [Concomitant]
     Dosage: 60 MG, QD
  5. LEVOTHYROXINE SODIUM [Concomitant]
     Dosage: 0.1 MG, EACH MORNING
  6. OLANZAPINE [Suspect]
     Indication: SCHIZOPHRENIA
     Dosage: 210 MG, UNK
     Route: 030
     Dates: start: 20120228
  7. TYLENOL                                 /SCH/ [Concomitant]
     Indication: HEADACHE
  8. CALCITRATE [Concomitant]
     Dosage: 2 DF, BID
  9. LAMOTRGINE [Concomitant]
     Dosage: 200 MG, BID

REACTIONS (5)
  - AGITATION [None]
  - HYPERHIDROSIS [None]
  - TACHYCARDIA [None]
  - MICTURITION URGENCY [None]
  - ANXIETY [None]
